FAERS Safety Report 6645862-2 (Version None)
Quarter: 2010Q1

REPORT INFORMATION
  Report Type: 
  Country: None (occurrence: None)
  Receive Date: 20100323
  Receipt Date: 20100310
  Transmission Date: 20100710
  Serious: Yes (Other)
  Sender: FDA-Public Use
  Company Number: PHHY2010CN14613

PATIENT
  Sex: Female

DRUGS (1)
  1. TASIGNA [Suspect]
     Indication: CHRONIC MYELOID LEUKAEMIA
     Dosage: UNK
     Dates: start: 20100303, end: 20100308

REACTIONS (3)
  - GENERALISED OEDEMA [None]
  - LOSS OF CONSCIOUSNESS [None]
  - WEIGHT INCREASED [None]
